FAERS Safety Report 9785497 (Version 1)
Quarter: 2013Q4

REPORT INFORMATION
  Report Type: Spontaneous
  Country: IT (occurrence: None)
  Receive Date: 20131224
  Receipt Date: 20131224
  Transmission Date: 20140711
  Serious: Yes (Other)
  Sender: FDA-Public Use
  Company Number: 2013-004036

PATIENT
  Age: 31 Year
  Sex: Female

DRUGS (5)
  1. SARAFEM [Suspect]
     Dates: start: 20131103, end: 20131128
  2. EPHEDRINE [Suspect]
     Indication: PRODUCT USED FOR UNKNOWN INDICATION
     Route: 048
     Dates: start: 20131103, end: 20131128
  3. TOPIRAMATE [Suspect]
     Indication: PRODUCT USED FOR UNKNOWN INDICATION
     Dates: start: 20131103, end: 20131128
  4. CLORAZEPATE DIPOTASSIUM [Suspect]
     Indication: PRODUCT USED FOR UNKNOWN INDICATION
     Dates: start: 20131103, end: 20131128
  5. BROMELAIN [Suspect]
     Indication: PRODUCT USED FOR UNKNOWN INDICATION
     Dates: start: 20131103, end: 20131128

REACTIONS (8)
  - Syncope [None]
  - Apraxia [None]
  - Hypokalaemia [None]
  - Mydriasis [None]
  - Thyroid disorder [None]
  - Head injury [None]
  - Electrocardiogram abnormal [None]
  - Alanine aminotransferase increased [None]
